FAERS Safety Report 23349623 (Version 1)
Quarter: 2023Q4

REPORT INFORMATION
  Report Type: Spontaneous
  Country: DE (occurrence: DE)
  Receive Date: 20231229
  Receipt Date: 20231229
  Transmission Date: 20240110
  Serious: Yes (Hospitalization, Other)
  Sender: FDA-Public Use
  Company Number: DE-TEVA-VS-3137821

PATIENT
  Age: 62 Year

DRUGS (3)
  1. RAMIPRIL [Suspect]
     Active Substance: RAMIPRIL
     Indication: Mechanical urticaria
     Route: 065
     Dates: start: 2000
  2. CANDESARTAN CILEXETIL [Concomitant]
     Active Substance: CANDESARTAN CILEXETIL
     Indication: Hypertension
     Dosage: ONCE DAILY HALF A TABLET
     Route: 065
     Dates: start: 2018
  3. Cetirizine-ratiopharm [Concomitant]
     Indication: Mechanical urticaria
     Dosage: ONCE DAILY HALF A TABLET

REACTIONS (2)
  - Cough [Not Recovered/Not Resolved]
  - Pneumonia [Not Recovered/Not Resolved]

NARRATIVE: CASE EVENT DATE: 20170101
